FAERS Safety Report 16396839 (Version 5)
Quarter: 2020Q4

REPORT INFORMATION
  Report Type: Spontaneous
  Country: PL (occurrence: PL)
  Receive Date: 20190606
  Receipt Date: 20201229
  Transmission Date: 20210113
  Serious: Yes (Other)
  Sender: FDA-Public Use
  Company Number: PL-JNJFOC-20190540658

PATIENT
  Age: 65 Year
  Sex: Female

DRUGS (15)
  1. TRAMADOL HYDROCHLORIDE. [Suspect]
     Active Substance: TRAMADOL HYDROCHLORIDE
     Route: 065
  2. METAMIZOL SODIUM [Suspect]
     Active Substance: METAMIZOL SODIUM
     Indication: ARTHRALGIA
     Route: 065
  3. IBUPROFEN. [Suspect]
     Active Substance: IBUPROFEN
     Indication: PAIN
     Route: 065
  4. PARACETAMOL [Suspect]
     Active Substance: ACETAMINOPHEN
     Indication: PAIN
     Route: 065
  5. TRAMADOL HYDROCHLORIDE. [Suspect]
     Active Substance: TRAMADOL HYDROCHLORIDE
     Route: 065
  6. DICLOFENAC [Suspect]
     Active Substance: DICLOFENAC
     Indication: ARTHRALGIA
     Dosage: UNK, ONCE A WEEK
     Route: 061
  7. IBUPROFEN. [Suspect]
     Active Substance: IBUPROFEN
     Indication: BACK PAIN
  8. DICLOFENAC [Suspect]
     Active Substance: DICLOFENAC
     Indication: PAIN
     Dosage: 75 MG, APPLIED FOR 12 HOURS
     Route: 061
  9. METAMIZOL SODIUM [Suspect]
     Active Substance: METAMIZOL SODIUM
     Indication: BACK PAIN
     Dosage: 50 MILLIGRAM, UP TO 3 TIMES PER DAY
     Route: 065
  10. DICLOFENAC [Suspect]
     Active Substance: DICLOFENAC
     Route: 061
  11. IBUPROFEN. [Suspect]
     Active Substance: IBUPROFEN
     Indication: ARTHRALGIA
  12. DICLOFENAC [Suspect]
     Active Substance: DICLOFENAC
     Indication: BACK PAIN
     Route: 061
  13. TRAMADOL HYDROCHLORIDE. [Suspect]
     Active Substance: TRAMADOL HYDROCHLORIDE
     Indication: PAIN
     Dosage: 100 MILLIGRAM, BID
     Route: 065
  14. TRAMADOL/APAP [Suspect]
     Active Substance: ACETAMINOPHEN\TRAMADOL
     Indication: PAIN
     Route: 065
  15. METAMIZOL SODIUM [Suspect]
     Active Substance: METAMIZOL SODIUM
     Indication: PAIN
     Route: 065

REACTIONS (14)
  - Muscle tone disorder [Unknown]
  - Dry mouth [Recovered/Resolved]
  - Abdominal pain [Recovering/Resolving]
  - Nausea [Recovered/Resolved]
  - Back pain [Recovering/Resolving]
  - Intervertebral disc disorder [Unknown]
  - Bone density decreased [Unknown]
  - Abdominal pain upper [Unknown]
  - Osteoarthritis [Unknown]
  - Dyspepsia [Unknown]
  - Spinal cord compression [Unknown]
  - Arthropathy [Unknown]
  - Oedema peripheral [Unknown]
  - Palpitations [Unknown]
